FAERS Safety Report 13737912 (Version 1)
Quarter: 2017Q3

REPORT INFORMATION
  Report Type: Spontaneous
  Country: US (occurrence: US)
  Receive Date: 20170710
  Receipt Date: 20170710
  Transmission Date: 20171127
  Serious: Yes (Other)
  Sender: FDA-Public Use
  Company Number: US-SAOL THERAPEUTICS-2016SAO00934

PATIENT
  Age: 47 Year
  Sex: Female

DRUGS (12)
  1. FENTANYL. [Suspect]
     Active Substance: FENTANYL
     Dosage: 2502 ?G, \DAY
     Route: 037
     Dates: start: 20161019
  2. COMPOUNDED BACLOFEN [Suspect]
     Active Substance: BACLOFEN
     Indication: PAIN
     Dosage: 15.40 ?G, \DAY
     Route: 037
  3. COMPOUNDED BACLOFEN [Suspect]
     Active Substance: BACLOFEN
     Dosage: 52.7 ?G, \DAY
     Route: 037
     Dates: start: 20161019
  4. FENTANYL. [Suspect]
     Active Substance: FENTANYL
     Dosage: 3425.3 ?G, \DAY
     Route: 037
     Dates: start: 20161019
  5. DILAUDID [Suspect]
     Active Substance: HYDROMORPHONE HYDROCHLORIDE
     Dosage: 0.23 MG, \DAY
     Route: 037
  6. DILAUDID [Suspect]
     Active Substance: HYDROMORPHONE HYDROCHLORIDE
     Dosage: 0.577 MG, \DAY
     Route: 037
     Dates: start: 20161019
  7. DILAUDID [Suspect]
     Active Substance: HYDROMORPHONE HYDROCHLORIDE
     Dosage: 0.790 MG, \DAY
     Route: 037
     Dates: start: 20161019
  8. COMPOUNDED BACLOFEN [Suspect]
     Active Substance: BACLOFEN
     Dosage: 38.49 ?G, \DAY
     Route: 037
     Dates: start: 20161019
  9. BUPIVICAINE [Suspect]
     Active Substance: BUPIVACAINE
     Dosage: 5.27 ?G, \DAY
     Route: 037
     Dates: start: 20161019
  10. FENTANYL. [Suspect]
     Active Substance: FENTANYL
     Dosage: 1000 ?G, \DAY
     Route: 037
  11. BUPIVICAINE [Suspect]
     Active Substance: BUPIVACAINE
     Dosage: 1.54 ?G, \DAY
     Route: 037
  12. BUPIVICAINE [Suspect]
     Active Substance: BUPIVACAINE
     Dosage: 3.849 ?G, \DAY
     Route: 037
     Dates: start: 20161019

REACTIONS (3)
  - Off label use [Unknown]
  - Anxiety [Recovered/Resolved]
  - Device failure [Recovered/Resolved]

NARRATIVE: CASE EVENT DATE: 20161018
